FAERS Safety Report 5027515-X (Version None)
Quarter: 2006Q2

REPORT INFORMATION
  Report Type: 
  Country: None (occurrence: None)
  Receive Date: 20060515
  Receipt Date: 20060210
  Transmission Date: 20061013
  Serious: No
  Sender: FDA-Public Use
  Company Number: S06-USA-00513-01

PATIENT
  Age: 77 Year
  Sex: Male

DRUGS (19)
  1. NAMENDA [Suspect]
     Indication: AMNESIA
     Dosage: 5 MG QD PO
     Route: 048
     Dates: start: 20060101, end: 20060107
  2. NAMENDA [Suspect]
     Indication: CONFUSIONAL STATE
     Dosage: 5 MG QD PO
     Route: 048
     Dates: start: 20060101, end: 20060107
  3. NAMENDA [Suspect]
     Indication: AMNESIA
     Dosage: 5 MG BID PO
     Route: 048
     Dates: start: 20060108, end: 20060114
  4. NAMENDA [Suspect]
     Indication: CONFUSIONAL STATE
     Dosage: 5 MG BID PO
     Route: 048
     Dates: start: 20060108, end: 20060114
  5. NAMENDA [Suspect]
     Indication: AMNESIA
     Dosage: 15 MG QD PO
     Route: 048
     Dates: start: 20060115, end: 20060121
  6. NAMENDA [Suspect]
     Indication: CONFUSIONAL STATE
     Dosage: 15 MG QD PO
     Route: 048
     Dates: start: 20060115, end: 20060121
  7. NAMENDA [Suspect]
     Indication: AMNESIA
     Dosage: 10 MG BID PO
     Route: 048
     Dates: start: 20060122
  8. NAMENDA [Suspect]
     Indication: CONFUSIONAL STATE
     Dosage: 10 MG BID PO
     Route: 048
     Dates: start: 20060122
  9. ACETAMINOPHEN [Concomitant]
  10. METHOCARBAMOL [Concomitant]
  11. DIGOXIN [Concomitant]
  12. GABAPENTIN [Concomitant]
  13. HYDROCHLOROTHIAZIDE [Concomitant]
  14. LOSARTAN [Concomitant]
  15. SIMVASTATIN [Concomitant]
  16. TERAZOSIN HCL [Concomitant]
  17. TRAZODONE HCL [Concomitant]
  18. WARFARIN SODIUM [Concomitant]
  19. INHALERS [Concomitant]

REACTIONS (1)
  - DRUG INEFFECTIVE [None]
